FAERS Safety Report 17992322 (Version 1)
Quarter: 2020Q3

REPORT INFORMATION
  Report Type: Report from Study
  Country: ZA (occurrence: ZA)
  Receive Date: 20200708
  Receipt Date: 20200708
  Transmission Date: 20201103
  Serious: Yes (Hospitalization)
  Sender: FDA-Public Use
  Company Number: ZA-ROCHE-2636833

PATIENT
  Sex: Female

DRUGS (7)
  1. MABTHERA [Suspect]
     Active Substance: RITUXIMAB
     Indication: RHEUMATOID ARTHRITIS
     Route: 042
     Dates: start: 20191007
  2. AZASAN [Concomitant]
     Active Substance: AZATHIOPRINE
     Route: 065
     Dates: start: 2018
  3. SALAZOPYRIN [Concomitant]
     Active Substance: SULFASALAZINE
     Route: 065
     Dates: start: 2018, end: 2018
  4. ENDOXAN [CYCLOPHOSPHAMIDE] [Concomitant]
     Active Substance: CYCLOPHOSPHAMIDE
     Dosage: 500MG X 6/12
     Route: 042
     Dates: start: 201809
  5. ELTROXIN [Concomitant]
     Active Substance: LEVOTHYROXINE
     Indication: HYPOTHYROIDISM
     Route: 065
  6. CHLOROQUINE. [Concomitant]
     Active Substance: CHLOROQUINE
     Route: 065
  7. FOSAMAX [Concomitant]
     Active Substance: ALENDRONATE SODIUM
     Indication: OSTEOPOROSIS
     Route: 065

REACTIONS (4)
  - Aspartate aminotransferase increased [Unknown]
  - Blood creatine increased [Unknown]
  - Diarrhoea [Unknown]
  - Rheumatoid arthritis [Unknown]
